FAERS Safety Report 17100659 (Version 2)
Quarter: 2020Q2

REPORT INFORMATION
  Report Type: Report from Study
  Country: US (occurrence: US)
  Receive Date: 20191202
  Receipt Date: 20200430
  Transmission Date: 20200713
  Serious: No
  Sender: FDA-Public Use
  Company Number: US-SA-2019SA325125

PATIENT
  Age: 16 Year
  Sex: Male

DRUGS (2)
  1. DUPILUMAB [Suspect]
     Active Substance: DUPILUMAB
     Indication: DERMATITIS ATOPIC
     Dosage: 300 MG, 1X
     Route: 058
     Dates: start: 201910, end: 201910
  2. DUPILUMAB [Suspect]
     Active Substance: DUPILUMAB
     Dosage: 300 MG, QOW
     Route: 058
     Dates: start: 2019, end: 202004

REACTIONS (9)
  - Erythema of eyelid [Unknown]
  - Swelling of eyelid [Unknown]
  - Swelling [Unknown]
  - Therapeutic response decreased [Unknown]
  - Erythema [Unknown]
  - Eczema [Unknown]
  - Incorrect dose administered [Unknown]
  - Eczema eyelids [Unknown]
  - Drug ineffective [Unknown]

NARRATIVE: CASE EVENT DATE: 2019
